FAERS Safety Report 7221328-6 (Version None)
Quarter: 2011Q1

REPORT INFORMATION
  Report Type: 
  Country: None (occurrence: None)
  Receive Date: 20110112
  Receipt Date: 20110105
  Transmission Date: 20110831
  Serious: Yes (Other)
  Sender: FDA-Public Use
  Company Number: CHPA2011US00610

PATIENT
  Age: 63 Year
  Sex: Female
  Weight: 86.168 kg

DRUGS (1)
  1. PREVACID 24 HR [Suspect]
     Indication: GASTROOESOPHAGEAL REFLUX DISEASE
     Dosage: 15 MG, BID
     Route: 048
     Dates: start: 20100101

REACTIONS (4)
  - INTENTIONAL DRUG MISUSE [None]
  - SHOULDER ARTHROPLASTY [None]
  - OVERDOSE [None]
  - OFF LABEL USE [None]
